FAERS Safety Report 12598329 (Version 6)
Quarter: 2024Q4

REPORT INFORMATION
  Report Type: Spontaneous
  Country: JP (occurrence: JP)
  Receive Date: 20160726
  Receipt Date: 20241206
  Transmission Date: 20250115
  Serious: Yes (Hospitalization, Other)
  Sender: GILEAD
  Company Number: JP-GILEAD-2016-0224640

PATIENT
  Age: 77 Year
  Sex: Male
  Weight: 62.9 kg

DRUGS (4)
  1. HARVONI [Suspect]
     Active Substance: LEDIPASVIR\SOFOSBUVIR
     Indication: Chronic hepatitis C
     Dosage: 1 DOSAGE FORM, QD
     Route: 048
     Dates: start: 20160303, end: 20160526
  2. GASTER [Concomitant]
     Active Substance: FAMOTIDINE
     Indication: Chronic gastritis
     Dosage: 40 MG
     Dates: start: 1990, end: 201608
  3. TEPRENONE [Concomitant]
     Active Substance: TEPRENONE
     Indication: Chronic gastritis
     Dosage: 1.5 G
     Dates: start: 1990, end: 201608
  4. ALFAROL [Concomitant]
     Active Substance: ALFACALCIDOL
     Indication: Osteoporosis
     Dosage: 1 DOSAGE FORM
     Dates: start: 1990, end: 201608

REACTIONS (1)
  - Diffuse large B-cell lymphoma stage III [Recovered/Resolved]

NARRATIVE: CASE EVENT DATE: 20160715
